FAERS Safety Report 15413142 (Version 1)
Quarter: 2018Q3

REPORT INFORMATION
  Report Type: Report from Study
  Country: US (occurrence: US)
  Receive Date: 20180921
  Receipt Date: 20180921
  Transmission Date: 20181010
  Serious: Yes (Hospitalization)
  Sender: FDA-Public Use
  Company Number: US-ROCHE-2187911

PATIENT
  Age: 15 Year
  Sex: Male
  Weight: 82.9 kg

DRUGS (1)
  1. NUTROPIN AQ [Suspect]
     Active Substance: SOMATROPIN
     Indication: HYPOPITUITARISM
     Dosage: 2.4 MG QD
     Route: 058
     Dates: start: 20160409

REACTIONS (6)
  - Head injury [Unknown]
  - Road traffic accident [Unknown]
  - Haemorrhage intracranial [Unknown]
  - Gynaecomastia [Unknown]
  - Obesity [Unknown]
  - Acanthosis nigricans [Unknown]

NARRATIVE: CASE EVENT DATE: 201801
